FAERS Safety Report 9240684 (Version 1)
Quarter: 2013Q1

REPORT INFORMATION
  Report Type: Spontaneous
  Country: US (occurrence: None)
  Receive Date: 20121120
  Receipt Date: 20121120
  Transmission Date: 20140127
  Serious: No
  Sender: FDA-Public Use
  Company Number: 1000038041

PATIENT
  Sex: Female

DRUGS (4)
  1. VIIBRYD [Suspect]
  2. RITALIN (METHYLPHENIDATE HYDROCHLORIDE) [Concomitant]
  3. VALIUM (DIAZEPAM) [Concomitant]
  4. SYNTHROID (LEVOTHYROXINE SODIUM) [Concomitant]

REACTIONS (1)
  - Dizziness [None]
